FAERS Safety Report 6273731-9 (Version None)
Quarter: 2009Q3

REPORT INFORMATION
  Report Type: 
  Country: None (occurrence: None)
  Receive Date: 20090720
  Receipt Date: 20090715
  Transmission Date: 20100115
  Serious: Yes (Death)
  Sender: FDA-Public Use
  Company Number: US-AMGEN-US353316

PATIENT
  Sex: Male

DRUGS (3)
  1. NPLATE [Suspect]
     Indication: DRUG USE FOR UNKNOWN INDICATION
     Route: 065
     Dates: start: 20080905
  2. CORTICOSTEROIDS [Concomitant]
     Dates: start: 20080327
  3. IMMUNOGLOBULINS [Concomitant]
     Dates: start: 20061101

REACTIONS (1)
  - INFECTION [None]
